FAERS Safety Report 9478746 (Version 1)
Quarter: 2013Q3

REPORT INFORMATION
  Report Type: Spontaneous
  Country: US (occurrence: None)
  Receive Date: 20130823
  Receipt Date: 20130823
  Transmission Date: 20140515
  Serious: Yes (Life-Threatening, Hospitalization)
  Sender: FDA-Public Use
  Company Number: SYM-2013-04182

PATIENT
  Age: 83 Year
  Sex: Female

DRUGS (8)
  1. MACUGEN [Suspect]
     Indication: AGE-RELATED MACULAR DEGENERATION
     Route: 031
     Dates: start: 20101125, end: 20120813
  2. MACUGEN [Suspect]
     Indication: CHOROIDAL NEOVASCULARISATION
     Route: 031
     Dates: start: 20101125, end: 20120813
  3. BANAN (CEFPODOXIME PROXETIL) (CEFPODOXIME PROXETIL) [Concomitant]
  4. CRAVIT (LEVOFLOXACIN) (EYEDROPS) (LEVOFLOXACIN) [Concomitant]
  5. VEGAMOX (MOXIFLOXACIN HYDROCHLORIDE) (MOXIFLOXACIN HYDROCHLORIDE) [Concomitant]
  6. BENOXIL (OXYBUPROCAINE HYDROCHLORIDE) ( EYE DROPS) (OXYBUPROCAINE HYDROCHLORIDE) [Concomitant]
  7. PA IODO (IODINE, POLYVINYL ALCOHOL) [Concomitant]
  8. MYDRIN P (MYDRIN P) (EYE DROPS) PHENLEPHRINE HYDROCHLORIDE, TROPICAMIDE) [Concomitant]

REACTIONS (1)
  - Myocardial infarction [None]
